FAERS Safety Report 5423588-0 (Version None)
Quarter: 2007Q3

REPORT INFORMATION
  Report Type: 
  Country: None (occurrence: None)
  Receive Date: 20070727
  Receipt Date: 20070613
  Transmission Date: 20080115
  Serious: No
  Sender: FDA-Public Use
  Company Number: 264549

PATIENT
  Age: 85 Year
  Sex: Female

DRUGS (1)
  1. LEVEMIR [Suspect]
     Indication: INSULIN-REQUIRING TYPE II DIABETES MELLITUS
     Dosage: 18 IU, QD, SUBCUTANEOUS
     Route: 058

REACTIONS (4)
  - ASTHENIA [None]
  - BLOOD GLUCOSE FLUCTUATION [None]
  - DISORIENTATION [None]
  - HYPERHIDROSIS [None]
